FAERS Safety Report 4587257-1 (Version None)
Quarter: 2005Q1

REPORT INFORMATION
  Report Type: 
  Country: None (occurrence: None)
  Receive Date: 20050218
  Receipt Date: 20050207
  Transmission Date: 20050727
  Serious: Yes (Life-Threatening, Hospitalization, Other)
  Sender: FDA-Public Use
  Company Number: FR-GLAXOSMITHKLINE-B0371625A

PATIENT
  Age: 61 Year
  Sex: Female
  Weight: 59 kg

DRUGS (5)
  1. ZEFFIX [Suspect]
     Indication: HEPATITIS B
     Dosage: 100MG PER DAY
     Route: 048
     Dates: start: 20000816
  2. TOCO [Suspect]
     Dosage: 500MG TWICE PER DAY
     Route: 048
     Dates: end: 20040905
  3. HEPSERA [Suspect]
     Dosage: 10MG PER DAY
     Route: 048
     Dates: start: 20040312
  4. SOPROL [Suspect]
     Dosage: 10MG PER DAY
     Route: 048
     Dates: end: 20040905
  5. LASILIX [Suspect]
     Dosage: 20MG PER DAY
     Route: 048

REACTIONS (12)
  - APHASIA [None]
  - ATRIAL FIBRILLATION [None]
  - BACK PAIN [None]
  - CHEST PAIN [None]
  - ELECTROCARDIOGRAM ABNORMAL [None]
  - HEMIPARESIS [None]
  - MALAISE [None]
  - MYOCARDIAL ISCHAEMIA [None]
  - PALPITATIONS [None]
  - PULMONARY EMBOLISM [None]
  - TACHYCARDIA [None]
  - TRANSIENT ISCHAEMIC ATTACK [None]
